FAERS Safety Report 21030453 (Version 1)
Quarter: 2022Q3

REPORT INFORMATION
  Report Type: Spontaneous
  Country: US (occurrence: None)
  Receive Date: 20220701
  Receipt Date: 20220701
  Transmission Date: 20221027
  Serious: No
  Sender: FDA-Public Use
  Company Number: US-ROCHE-2994277

PATIENT
  Age: 77 Year
  Sex: Female
  Weight: 69.916 kg

DRUGS (13)
  1. ACTEMRA [Suspect]
     Active Substance: TOCILIZUMAB
     Indication: Rheumatoid arthritis
     Route: 058
     Dates: start: 2018
  2. ACTEMRA [Suspect]
     Active Substance: TOCILIZUMAB
  3. ACTEMRA [Suspect]
     Active Substance: TOCILIZUMAB
  4. MORPHINE [Concomitant]
     Active Substance: MORPHINE
     Indication: Pain
  5. BACLOFEN [Concomitant]
     Active Substance: BACLOFEN
     Indication: Muscle spasms
  6. CARVEDILOL [Concomitant]
     Active Substance: CARVEDILOL
  7. FOLIC ACID [Concomitant]
     Active Substance: FOLIC ACID
  8. LOSARTAN [Concomitant]
     Active Substance: LOSARTAN
     Dates: start: 2004
  9. METFORMIN [Concomitant]
     Active Substance: METFORMIN HYDROCHLORIDE
     Indication: Diabetes mellitus
     Dates: start: 2006
  10. METHOTREXATE [Concomitant]
     Active Substance: METHOTREXATE
     Indication: Rheumatoid arthritis
     Dosage: 5 TABLETS ONCE A WEEK
     Dates: start: 2003
  11. NITROGLYCERIN [Concomitant]
     Active Substance: NITROGLYCERIN
     Indication: Chest pain
     Dosage: ONE IF HAVE CHEST PAIN
     Dates: start: 2011
  12. OXYBUTYNIN [Concomitant]
     Active Substance: OXYBUTYNIN
     Dosage: HALF TABLET TWICE A DAY
     Dates: start: 2005
  13. SPIRONOLACTONE [Concomitant]
     Active Substance: SPIRONOLACTONE
     Indication: Peripheral swelling
     Dosage: ONCE A DAY
     Dates: start: 2005

REACTIONS (3)
  - Product dose omission issue [Unknown]
  - Needle issue [Unknown]
  - Peripheral swelling [Unknown]

NARRATIVE: CASE EVENT DATE: 20211223
